FAERS Safety Report 8563965-2 (Version None)
Quarter: 2012Q3

REPORT INFORMATION
  Report Type: 
  Country: None (occurrence: None)
  Receive Date: 20120803
  Receipt Date: 20120726
  Transmission Date: 20120928
  Serious: Yes (Other)
  Sender: FDA-Public Use
  Company Number: PHHY2010BR17292

PATIENT
  Sex: Female

DRUGS (5)
  1. DIOVAN [Suspect]
     Dosage: 4 DF (80 MG), PER DAY
  2. DIOVAN [Suspect]
     Indication: HYPERTENSION
     Dosage: 2 DF (80 MG), DAILY
     Route: 048
  3. DIOVAN [Suspect]
     Dosage: 2 DF (160 MG), DAILY
     Route: 048
  4. DIOSMIN [Concomitant]
     Indication: VENOUS OCCLUSION
     Dosage: 400 MG, UNK
  5. SOTALOL HYDROCHLORIDE [Concomitant]
     Indication: ATRIOVENTRICULAR BLOCK
     Dosage: 0.5 DF (120 MG), BID
     Route: 048

REACTIONS (6)
  - SALIVARY HYPERSECRETION [None]
  - MALAISE [None]
  - NAUSEA [None]
  - ARRHYTHMIA [None]
  - BLOOD PRESSURE INADEQUATELY CONTROLLED [None]
  - ABDOMINAL PAIN UPPER [None]
